FAERS Safety Report 6793396-7 (Version None)
Quarter: 2010Q2

REPORT INFORMATION
  Report Type: 
  Country: None (occurrence: None)
  Receive Date: 20100624
  Receipt Date: 20100129
  Transmission Date: 20101027
  Serious: Yes (Death)
  Sender: FDA-Public Use
  Company Number: US-MYLANLABS-2010S1001746

PATIENT
  Age: 35 Year
  Sex: Male

DRUGS (7)
  1. CLOZAPINE [Suspect]
  2. DEPAKOTE ER [Concomitant]
  3. FLUOXETINE HCL [Concomitant]
  4. LAMICTAL [Concomitant]
  5. LEVOTHYROXINE [Concomitant]
  6. RANITIDINE [Concomitant]
  7. KLONOPIN [Concomitant]

REACTIONS (1)
  - DEATH [None]
